FAERS Safety Report 12585029 (Version 1)
Quarter: 2016Q3

REPORT INFORMATION
  Report Type: Report from Study
  Country: US (occurrence: US)
  Receive Date: 20160723
  Receipt Date: 20160723
  Transmission Date: 20161109
  Serious: Yes (Hospitalization)
  Sender: FDA-Public Use
  Company Number: US-ABBVIE-16K-163-1676729-00

PATIENT
  Age: 83 Year
  Sex: Male
  Weight: 75.82 kg

DRUGS (1)
  1. HUMIRA [Suspect]
     Active Substance: ADALIMUMAB
     Indication: PSORIATIC ARTHROPATHY
     Route: 058
     Dates: start: 200803

REACTIONS (7)
  - Weight decreased [Recovering/Resolving]
  - Herpes zoster [Not Recovered/Not Resolved]
  - Decreased appetite [Recovered/Resolved]
  - Bronchitis [Recovered/Resolved]
  - Pruritus [Not Recovered/Not Resolved]
  - Dehydration [Recovered/Resolved]
  - Gastric ulcer [Recovering/Resolving]

NARRATIVE: CASE EVENT DATE: 201605
